FAERS Safety Report 12001754 (Version 1)
Quarter: 2016Q1

REPORT INFORMATION
  Report Type: Spontaneous
  Country: US (occurrence: US)
  Receive Date: 20160204
  Receipt Date: 20160204
  Transmission Date: 20160526
  Serious: No
  Sender: FDA-Public Use
  Company Number: US-PERRIGO-15US007486

PATIENT
  Sex: Male
  Weight: 49.89 kg

DRUGS (6)
  1. DIPHENHYDRAMINE HCL [Concomitant]
     Active Substance: DIPHENHYDRAMINE HYDROCHLORIDE
     Indication: PERENNIAL ALLERGY
     Dosage: UNK
     Route: 048
     Dates: start: 2005, end: 201506
  2. DIPHENHYDRAMINE HCL [Concomitant]
     Active Substance: DIPHENHYDRAMINE HYDROCHLORIDE
     Indication: INSOMNIA
  3. IBUPROFEN. [Suspect]
     Active Substance: IBUPROFEN
     Indication: PAIN
     Dosage: 200 MG, QD
     Route: 048
     Dates: start: 2000
  4. ADDERALL [Concomitant]
     Active Substance: AMPHETAMINE ASPARTATE\AMPHETAMINE SULFATE\DEXTROAMPHETAMINE SACCHARATE\DEXTROAMPHETAMINE SULFATE
     Indication: ATTENTION DEFICIT/HYPERACTIVITY DISORDER
     Dosage: UNK
     Route: 065
     Dates: start: 2003
  5. VALTREX [Concomitant]
     Active Substance: VALACYCLOVIR HYDROCHLORIDE
     Indication: HERPES SIMPLEX
     Dosage: UNK
     Route: 065
     Dates: start: 201506
  6. DIPHENHYDRAMINE HCL [Concomitant]
     Active Substance: DIPHENHYDRAMINE HYDROCHLORIDE
     Indication: OROPHARYNGEAL PAIN
     Dosage: UNK
     Route: 048
     Dates: start: 20150717, end: 20150717

REACTIONS (3)
  - No adverse event [Recovered/Resolved]
  - Incorrect drug administration duration [Not Recovered/Not Resolved]
  - Drug administered to patient of inappropriate age [Unknown]

NARRATIVE: CASE EVENT DATE: 2000
